FAERS Safety Report 22239109 (Version 21)
Quarter: 2024Q1

REPORT INFORMATION
  Report Type: Spontaneous
  Country: US (occurrence: US)
  Receive Date: 20230421
  Receipt Date: 20240201
  Transmission Date: 20240409
  Serious: No
  Sender: FDA-Public Use
  Company Number: US-BIOGEN-2023BI01200555

PATIENT
  Sex: Female

DRUGS (1)
  1. TYSABRI [Suspect]
     Active Substance: NATALIZUMAB
     Indication: Multiple sclerosis
     Route: 050
     Dates: start: 20200319, end: 20230313

REACTIONS (11)
  - Product dose omission in error [Unknown]
  - Product dose omission issue [Unknown]
  - Gait disturbance [Not Recovered/Not Resolved]
  - Illness [Unknown]
  - Multiple sclerosis [Unknown]
  - Crying [Unknown]
  - Mental impairment [Unknown]
  - General physical health deterioration [Unknown]
  - Anaemia [Unknown]
  - Depression [Not Recovered/Not Resolved]
  - Fatigue [Unknown]
